FAERS Safety Report 6162785-6 (Version None)
Quarter: 2009Q2

REPORT INFORMATION
  Report Type: 
  Country: None (occurrence: None)
  Receive Date: 20090421
  Receipt Date: 20080715
  Transmission Date: 20091009
  Serious: No
  Sender: FDA-Public Use
  Company Number: US-ASTRAZENECA-2008UW13833

PATIENT
  Age: 62 Year
  Sex: Female
  Weight: 62.6 kg

DRUGS (4)
  1. TOPROL-XL [Suspect]
     Route: 048
     Dates: start: 20070101
  2. TOPROL-XL [Suspect]
     Dosage: 100 MG
     Route: 048
  3. TOPROL-XL [Suspect]
     Dosage: 50 MG
     Route: 048
  4. CALCIUM [Concomitant]

REACTIONS (4)
  - DYSPNOEA [None]
  - HOT FLUSH [None]
  - HYPOAESTHESIA [None]
  - PALPITATIONS [None]
